FAERS Safety Report 6133308-2 (Version None)
Quarter: 2009Q1

REPORT INFORMATION
  Report Type: 
  Country: None (occurrence: None)
  Receive Date: 20090324
  Receipt Date: 20090319
  Transmission Date: 20090719
  Serious: Yes (Death)
  Sender: FDA-Public Use
  Company Number: A0774288A

PATIENT
  Sex: Male

DRUGS (1)
  1. SODIUM FLUORIDE F 18 [Suspect]
     Indication: DENTAL CLEANING
     Dosage: DENTAL
     Route: 004

REACTIONS (1)
  - PARKINSON'S DISEASE [None]
